FAERS Safety Report 8396557-9 (Version None)
Quarter: 2012Q1

REPORT INFORMATION
  Report Type: 
  Country: None (occurrence: None)
  Receive Date: 20120323
  Receipt Date: 20110708
  Transmission Date: 20120608
  Serious: Yes (Disabling, Other)
  Sender: FDA-Public Use
  Company Number: 163-21880-11042092

PATIENT
  Sex: Female

DRUGS (6)
  1. SC [Concomitant]
  2. ARANESP [Concomitant]
  3. VENOFER [Concomitant]
  4. NEUPOGEN [Concomitant]
  5. ZOMETA [Concomitant]
  6. REVLIMID [Suspect]
     Indication: MULTIPLE MYELOMA
     Dosage: 25 MG, DAILY FOR 21 DAYS THEN 7 DAYS OFF, PO
     Route: 048
     Dates: start: 20110101

REACTIONS (2)
  - PANCYTOPENIA [None]
  - WEIGHT DECREASED [None]
